FAERS Safety Report 7224703-9 (Version None)
Quarter: 2011Q1

REPORT INFORMATION
  Report Type: 
  Country: None (occurrence: None)
  Receive Date: 20110104
  Receipt Date: 20101220
  Transmission Date: 20110831
  Serious: Yes (Hospitalization)
  Sender: FDA-Public Use
  Company Number: 1000017950

PATIENT
  Age: 46 Year
  Sex: Male

DRUGS (1)
  1. ESCITALOPRAM (ESCITALOPRAM OXALATE) (TABLETS) [Suspect]
     Indication: ANXIETY
     Dosage: 20 MG (20D MG, 1 IN 1 D) ORAL
     Route: 048
     Dates: start: 20101216, end: 20101216

REACTIONS (2)
  - LIP OEDEMA [None]
  - EYELID OEDEMA [None]
